FAERS Safety Report 23918313 (Version 3)
Quarter: 2024Q3

REPORT INFORMATION
  Report Type: Report from Study
  Country: AU (occurrence: None)
  Receive Date: 20240530
  Receipt Date: 20240703
  Transmission Date: 20241017
  Serious: Yes (Death, Other)
  Sender: ASTRAZENECA
  Company Number: 2024A120110

PATIENT
  Age: 78 Year
  Sex: Male

DRUGS (1)
  1. ACALABRUTINIB [Suspect]
     Active Substance: ACALABRUTINIB
     Indication: Splenic marginal zone lymphoma
     Route: 048

REACTIONS (5)
  - Sepsis [Fatal]
  - Osteoporosis [Unknown]
  - Chronic kidney disease [Unknown]
  - Splenic marginal zone lymphoma recurrent [Unknown]
  - Off label use [Unknown]
